FAERS Safety Report 5802953-3 (Version None)
Quarter: 2008Q3

REPORT INFORMATION
  Report Type: 
  Country: None (occurrence: None)
  Receive Date: 20080708
  Receipt Date: 20080627
  Transmission Date: 20090109
  Serious: Yes (Other)
  Sender: FDA-Public Use
  Company Number: DE-ROCHE-573267

PATIENT
  Sex: Male

DRUGS (2)
  1. LARIAM [Suspect]
     Indication: MALARIA
     Route: 048
     Dates: start: 20080301
  2. LARIAM [Suspect]
     Route: 048

REACTIONS (4)
  - DYSPNOEA [None]
  - PNEUMONIA [None]
  - PULMONARY FIBROSIS [None]
  - PULMONARY OEDEMA [None]
